FAERS Safety Report 8240322-X (Version None)
Quarter: 2012Q1

REPORT INFORMATION
  Report Type: 
  Country: None (occurrence: None)
  Receive Date: 20120328
  Receipt Date: 20120328
  Transmission Date: 20120608
  Serious: Yes (Other)
  Sender: FDA-Public Use
  Company Number: None

PATIENT
  Age: 54 Year
  Sex: Female
  Weight: 68.038 kg

DRUGS (2)
  1. ZYVOX [Suspect]
     Indication: POSTOPERATIVE CARE
     Dosage: 600 MG
     Route: 048
     Dates: start: 20120321, end: 20120327
  2. ZYVOX [Suspect]
     Indication: INFECTION PROPHYLAXIS
     Dosage: 600 MG
     Route: 048
     Dates: start: 20120321, end: 20120327

REACTIONS (9)
  - MIGRAINE [None]
  - SKIN EXFOLIATION [None]
  - NAUSEA [None]
  - ABDOMINAL PAIN UPPER [None]
  - CHILLS [None]
  - RASH [None]
  - DIARRHOEA [None]
  - BLISTER [None]
  - INSOMNIA [None]
